FAERS Safety Report 7461025-5 (Version None)
Quarter: 2011Q2

REPORT INFORMATION
  Report Type: 
  Country: None (occurrence: None)
  Receive Date: 20110505
  Receipt Date: 20110428
  Transmission Date: 20111010
  Serious: Yes (Other)
  Sender: FDA-Public Use
  Company Number: CH-GENZYME-POMP-1001132

PATIENT
  Sex: Female
  Weight: 8.7 kg

DRUGS (6)
  1. CORTICOSTEROID NOS [Concomitant]
     Indication: HYPERSENSITIVITY
     Dosage: UNK UNK, UNK
     Route: 042
     Dates: start: 20070101, end: 20070101
  2. MYOZYME [Suspect]
     Dosage: 10 MG/KG, QW
     Route: 042
     Dates: start: 20061101, end: 20070101
  3. MYOZYME [Suspect]
     Indication: GLYCOGEN STORAGE DISEASE TYPE II
     Dosage: 14 MG/KG, UNK
     Route: 042
     Dates: start: 20070101
  4. MYOZYME [Suspect]
     Dosage: 20 MG/KG, Q2W
     Route: 042
     Dates: start: 20060801, end: 20061101
  5. XOLAIR [Concomitant]
     Indication: HYPERSENSITIVITY
     Dosage: UNK UNK, UNK
     Route: 065
  6. ANTIHISTAMINES [Concomitant]
     Indication: HYPERSENSITIVITY
     Dosage: UNK UNK, UNK
     Route: 042
     Dates: start: 20070101, end: 20070101

REACTIONS (4)
  - HEARING IMPAIRED [None]
  - SPEECH DISORDER DEVELOPMENTAL [None]
  - NERVOUS SYSTEM DISORDER [None]
  - DEVELOPMENTAL DELAY [None]
